FAERS Safety Report 9774548 (Version 1)
Quarter: 2013Q4

REPORT INFORMATION
  Report Type: Spontaneous
  Country: US (occurrence: US)
  Receive Date: 20131220
  Receipt Date: 20131220
  Transmission Date: 20140711
  Serious: Yes (Other)
  Sender: FDA-Public Use
  Company Number: US-PERRIGO-13US012770

PATIENT
  Age: 24 Year
  Sex: Male
  Weight: 72.56 kg

DRUGS (4)
  1. DEXTROMETHORPHAN HYDROBROMIDE [Suspect]
     Indication: AFFECT LABILITY
     Dosage: 4-12 OUNCES, SINGLE
     Route: 048
     Dates: start: 20131211, end: 20131211
  2. DEXTROMETHORPHAN HYDROBROMIDE [Suspect]
     Indication: INTENTIONAL OVERDOSE
  3. ADDERALL [Concomitant]
     Indication: PRODUCT USED FOR UNKNOWN INDICATION
     Dosage: UNK, BID
     Route: 048
     Dates: start: 201310
  4. KLONOPIN [Concomitant]
     Indication: ANXIETY
     Dosage: 0.5 MG, BID, PRN
     Route: 065

REACTIONS (6)
  - Intentional overdose [Recovered/Resolved]
  - Motor dysfunction [Recovering/Resolving]
  - Dysarthria [Unknown]
  - Balance disorder [Recovering/Resolving]
  - Haematemesis [Recovered/Resolved]
  - Feeling abnormal [Not Recovered/Not Resolved]
